FAERS Safety Report 18483811 (Version 2)
Quarter: 2020Q4

REPORT INFORMATION
  Report Type: Spontaneous
  Country: IL (occurrence: IL)
  Receive Date: 20201109
  Receipt Date: 20201119
  Transmission Date: 20210114
  Serious: Yes (Life-Threatening, Other)
  Sender: FDA-Public Use
  Company Number: IL-BAXTER-2020BAX022275

PATIENT
  Age: 34 Year
  Sex: Male

DRUGS (4)
  1. CARBOPLATIN. [Suspect]
     Active Substance: CARBOPLATIN
     Indication: HISTIOCYTIC SARCOMA
     Dosage: ICE REGIMEN
     Route: 065
  2. ETOPOSIDE. [Suspect]
     Active Substance: ETOPOSIDE
     Indication: HISTIOCYTIC SARCOMA
     Dosage: ICE REGIMEN
     Route: 042
  3. THALIDOMIDE [Suspect]
     Active Substance: THALIDOMIDE
     Indication: HISTIOCYTIC SARCOMA
     Route: 048
  4. HOLOXAN 2G [Suspect]
     Active Substance: IFOSFAMIDE
     Indication: HISTIOCYTIC SARCOMA
     Dosage: ICE REGIMEN
     Route: 042

REACTIONS (1)
  - Treatment failure [Unknown]
